FAERS Safety Report 6648580-X (Version None)
Quarter: 2010Q1

REPORT INFORMATION
  Report Type: 
  Country: None (occurrence: None)
  Receive Date: 20100309
  Receipt Date: 20100203
  Transmission Date: 20100710
  Serious: No
  Sender: FDA-Public Use
  Company Number: 2010SP007095

PATIENT
  Age: 38 Year
  Sex: Male

DRUGS (6)
  1. SAPHRIS [Suspect]
     Indication: DRUG USE FOR UNKNOWN INDICATION
     Dosage: 5 MG; BID; SL, 10 MG; BID; SL
     Route: 060
  2. LITHIUM CARBONATE [Concomitant]
  3. COGENTIN [Concomitant]
  4. SIMVASTATIN [Concomitant]
  5. METFORMIN (GLUCOPHAGE) [Concomitant]
  6. SYNTHROID [Concomitant]

REACTIONS (2)
  - POLYDIPSIA [None]
  - POLYURIA [None]
